FAERS Safety Report 11109535 (Version 1)
Quarter: 2015Q2

REPORT INFORMATION
  Report Type: Spontaneous
  Country: US (occurrence: None)
  Receive Date: 20150504
  Receipt Date: 20150504
  Transmission Date: 20150821
  Serious: Yes (Other)
  Sender: FDA-Public Use
  Company Number: 1478947

PATIENT
  Sex: Female
  Weight: 61.69 kg

DRUGS (5)
  1. LOSARTAN (LOSARTAN) [Concomitant]
     Active Substance: LOSARTAN
  2. DEMEROL (PETHIDINE HYDROCHLORIDE) [Concomitant]
  3. AVASTIN [Suspect]
     Active Substance: BEVACIZUMAB
     Indication: RENAL CELL CARCINOMA
     Dosage: NOT OTHERWISE SPECIFIED
     Route: 042
     Dates: start: 20140403, end: 20141002
  4. BENADRYL ALLERGY (UNITED STATES) (DIPHENHYDRAMINE HYDROCHLORIDE) [Concomitant]
  5. DECADRON [Concomitant]
     Active Substance: DEXAMETHASONE

REACTIONS (4)
  - Chills [None]
  - Hypertension [None]
  - Pyrexia [None]
  - Bacteraemia [None]
